FAERS Safety Report 5950904-3 (Version None)
Quarter: 2008Q4

REPORT INFORMATION
  Report Type: 
  Country: None (occurrence: None)
  Receive Date: 20081112
  Receipt Date: 20081031
  Transmission Date: 20090506
  Serious: Yes (Life-Threatening, Hospitalization, Other)
  Sender: FDA-Public Use
  Company Number: US-PFIZER INC-2004102110

PATIENT
  Sex: Female
  Weight: 72 kg

DRUGS (9)
  1. SU-011,248 [Suspect]
     Indication: METASTATIC RENAL CELL CARCINOMA
     Route: 048
     Dates: start: 20041025, end: 20041115
  2. AMBIEN [Concomitant]
     Indication: ILL-DEFINED DISORDER
     Route: 048
  3. TYLENOL [Concomitant]
     Indication: ILL-DEFINED DISORDER
     Route: 048
  4. ATENOLOL [Concomitant]
     Indication: ILL-DEFINED DISORDER
     Route: 048
  5. LIPITOR [Concomitant]
     Indication: ILL-DEFINED DISORDER
     Route: 048
  6. SYNTHROID [Concomitant]
     Indication: ILL-DEFINED DISORDER
     Route: 048
  7. CIPROFLOXACIN [Concomitant]
     Indication: ILL-DEFINED DISORDER
     Route: 048
     Dates: start: 20041119, end: 20041122
  8. AZITHROMYCIN [Concomitant]
     Indication: ILL-DEFINED DISORDER
     Route: 048
     Dates: start: 20041122, end: 20041126
  9. AMILORIDE HCL AND HYDROCHLOROTHIAZIDE [Concomitant]
     Indication: ILL-DEFINED DISORDER
     Route: 048

REACTIONS (2)
  - HYPERTENSION [None]
  - SUPERIOR VENA CAVAL OCCLUSION [None]
